FAERS Safety Report 19026488 (Version 1)
Quarter: 2021Q1

REPORT INFORMATION
  Report Type: Report from Study
  Country: US (occurrence: US)
  Receive Date: 20210318
  Receipt Date: 20210318
  Transmission Date: 20210420
  Serious: Yes (Hospitalization)
  Sender: FDA-Public Use
  Company Number: US-PACIRA-2021000199

PATIENT
  Age: 66 Year
  Sex: Female
  Weight: 57 kg

DRUGS (20)
  1. EXPAREL [Suspect]
     Active Substance: BUPIVACAINE
     Indication: POSTOPERATIVE ANALGESIA
     Dosage: 2017 20ML EXPAREL AND 40ML SALINE TOTAL VOLUME 60ML
     Route: 065
  2. NORCO [Concomitant]
     Active Substance: ACETAMINOPHEN\HYDROCODONE BITARTRATE
     Indication: POSTOPERATIVE ANALGESIA
     Dosage: 12:40PM??1 TABLET 1
     Route: 065
     Dates: start: 20171212
  3. NORCO 5 [Concomitant]
     Indication: POSTOPERATIVE ANALGESIA
     Dosage: 12:03AM??1 TABLET 1
     Route: 065
     Dates: start: 20171213
  4. SALINE [Concomitant]
     Active Substance: SODIUM CHLORIDE
     Indication: POSTOPERATIVE ANALGESIA
     Dosage: 2017; 40ML WITH 20ML EXPAREL. TOTAL VOLUME 60ML
     Route: 065
  5. OXYCONTIN [Concomitant]
     Active Substance: OXYCODONE HYDROCHLORIDE
     Indication: PREOPERATIVE CARE
     Dosage: 12 HR TABLET 10 MG 10 8:54PM
     Route: 048
     Dates: start: 20171212
  6. PROPOFOL. [Concomitant]
     Active Substance: PROPOFOL
     Indication: INTRAOPERATIVE CARE
     Dosage: NOT REPORTED
     Route: 065
  7. OXYGEN. [Concomitant]
     Active Substance: OXYGEN
     Indication: INTRAOPERATIVE CARE
     Dosage: NOT REPORTED
     Route: 065
  8. TYLENOL [Concomitant]
     Active Substance: ACETAMINOPHEN
     Indication: INTRAOPERATIVE CARE
     Dosage: NOT REPORTED
     Route: 042
  9. NORCO 5 [Concomitant]
     Indication: POSTOPERATIVE ANALGESIA
     Dosage: (REPLACES VICODIN 5?500) 1?2 TABLET 1?2 TABLETS BY MOUTH EVERY 4 (FOUR) HOURS AS NEEDED (Q4H PRN)
     Route: 048
     Dates: start: 20171213
  10. SUBLIMAZE [Concomitant]
     Active Substance: FENTANYL CITRATE
     Indication: POSTOPERATIVE ANALGESIA
     Dosage: 25 MCG 50??MCG/MLMCG
     Route: 042
     Dates: start: 20171212
  11. CELEBREX [Concomitant]
     Active Substance: CELECOXIB
     Indication: PREOPERATIVE CARE
     Dosage: NOT PROVIDED
     Route: 065
  12. OXYCONTIN [Concomitant]
     Active Substance: OXYCODONE HYDROCHLORIDE
     Indication: POSTOPERATIVE ANALGESIA
     Dosage: 8:54PM??12 HR TABLET 10 MG 10
     Route: 065
     Dates: start: 20171212
  13. ETOMIDATE. [Concomitant]
     Active Substance: ETOMIDATE
     Indication: INTRAOPERATIVE CARE
     Dosage: NOT PROVIDED
     Route: 065
  14. NORCO 5 [Concomitant]
     Indication: POSTOPERATIVE ANALGESIA
     Dosage: 11:40AM??1 TABLET 1
     Route: 065
     Dates: start: 20171213
  15. DEXAMETHASONE. [Concomitant]
     Active Substance: DEXAMETHASONE
     Indication: INTRAOPERATIVE CARE
     Dosage: NOT REPORTED
     Route: 065
  16. BUPIVACAINE. [Suspect]
     Active Substance: BUPIVACAINE
     Indication: POSTOPERATIVE ANALGESIA
     Dosage: 2017; 30ML
     Route: 065
  17. MIDAZOLAM. [Concomitant]
     Active Substance: MIDAZOLAM
     Indication: INTRAOPERATIVE CARE
     Dosage: NOT REPORTED
     Route: 065
  18. ONDANSETRON [Concomitant]
     Active Substance: ONDANSETRON
     Indication: INTRAOPERATIVE CARE
     Dosage: NOT REPORTED
     Route: 065
  19. METOCLOPRAMI [Concomitant]
     Indication: INTRAOPERATIVE CARE
     Dosage: NOT REPORTED
     Route: 065
  20. NORCO 5 [Concomitant]
     Indication: POSTOPERATIVE ANALGESIA
     Dosage: 3:50PM??1 TABLET 1
     Route: 065
     Dates: start: 20171212

REACTIONS (1)
  - Osteoarthritis [Unknown]
